FAERS Safety Report 20003391 (Version 2)
Quarter: 2021Q4

REPORT INFORMATION
  Report Type: Spontaneous
  Country: FR (occurrence: FR)
  Receive Date: 20211027
  Receipt Date: 20211105
  Transmission Date: 20220303
  Serious: Yes (Hospitalization, Other)
  Sender: FDA-Public Use
  Company Number: FR-AMERICAN REGENT INC-2021002795

PATIENT
  Age: 31 Year
  Sex: Female
  Weight: 68 kg

DRUGS (2)
  1. FERINJECT [Suspect]
     Active Substance: FERRIC CARBOXYMALTOSE
     Indication: Anaemia of pregnancy
     Dosage: 1 G DILUTED IN 250 CC 0.9 % NACL
     Route: 042
     Dates: start: 20210722, end: 20210722
  2. FERINJECT [Suspect]
     Active Substance: FERRIC CARBOXYMALTOSE
     Indication: Iron deficiency anaemia

REACTIONS (5)
  - Throat tightness [Not Recovered/Not Resolved]
  - Ear discomfort [Not Recovered/Not Resolved]
  - Neck pain [Not Recovered/Not Resolved]
  - Maternal exposure during pregnancy [Unknown]
  - Abdominal pain upper [Not Recovered/Not Resolved]

NARRATIVE: CASE EVENT DATE: 20210722
